FAERS Safety Report 10688069 (Version 2)
Quarter: 2015Q2

REPORT INFORMATION
  Report Type: Spontaneous
  Country: US (occurrence: US)
  Receive Date: 20150102
  Receipt Date: 20150421
  Transmission Date: 20150821
  Serious: Yes (Other)
  Sender: FDA-Public Use
  Company Number: US-BAYER-2014-190323

PATIENT
  Age: 69 Year
  Sex: Male
  Weight: 77.98 kg

DRUGS (1)
  1. BAYER LOW DOSE [Suspect]
     Active Substance: ASPIRIN
     Indication: BLOOD DISORDER
     Dosage: 1 DF, QD
     Route: 048
     Dates: start: 2009

REACTIONS (2)
  - Gastric ulcer [Recovered/Resolved]
  - Product use issue [None]

NARRATIVE: CASE EVENT DATE: 2009
